FAERS Safety Report 9616158 (Version 1)
Quarter: 2013Q4

REPORT INFORMATION
  Report Type: Spontaneous
  Country: ES (occurrence: ES)
  Receive Date: 20131011
  Receipt Date: 20131011
  Transmission Date: 20140711
  Serious: Yes (Other)
  Sender: FDA-Public Use
  Company Number: ES-JNJFOC-20131002802

PATIENT
  Age: 66 Year
  Sex: Male

DRUGS (5)
  1. XEPLION [Suspect]
     Indication: SCHIZOPHRENIA, RESIDUAL TYPE
     Route: 030
     Dates: start: 20121112, end: 201305
  2. XEPLION [Suspect]
     Indication: SCHIZOPHRENIA, RESIDUAL TYPE
     Route: 030
     Dates: start: 20130514, end: 20131003
  3. INVEGA [Suspect]
     Indication: SCHIZOPHRENIA, RESIDUAL TYPE
     Dosage: 18 MG + 6 MG
     Route: 048
     Dates: start: 20130920, end: 20131003
  4. INVEGA [Suspect]
     Indication: SCHIZOPHRENIA, RESIDUAL TYPE
     Route: 048
     Dates: start: 20121016, end: 201309
  5. HEPATITIS B VACCINE [Suspect]
     Indication: IMMUNISATION
     Dosage: 7 DAYS AGO TO 04-OCT-2013
     Route: 065

REACTIONS (4)
  - Hypotonia [Recovered/Resolved]
  - Depressed level of consciousness [Recovered/Resolved]
  - Salivary hypersecretion [Recovered/Resolved]
  - Pyrexia [Recovered/Resolved]
